FAERS Safety Report 9876544 (Version 2)
Quarter: 2014Q1

REPORT INFORMATION
  Report Type: Other
  Country: US (occurrence: US)
  Receive Date: 20140206
  Receipt Date: 20140206
  Transmission Date: 20141002
  Serious: No
  Sender: FDA-Public Use
  Company Number: US-ACORDA-ACO_36637_2013

PATIENT
  Age: 50 Year
  Sex: Female

DRUGS (6)
  1. AMPYRA [Suspect]
     Indication: MULTIPLE SCLEROSIS
     Dosage: 10 MG, BID
     Route: 048
     Dates: start: 201211, end: 201212
  2. AMPYRA [Suspect]
     Indication: FALL
  3. AMITRIPTYLINE [Concomitant]
     Indication: BACK PAIN
     Dosage: 50 MG, QD AT HS
  4. AVONEX [Concomitant]
     Indication: MULTIPLE SCLEROSIS
     Dosage: 30 ?G, WEEKLY
  5. BACLOFEN [Concomitant]
     Indication: MUSCLE SPASTICITY
     Dosage: 10 MG, TID
  6. NAPROXEN [Concomitant]
     Indication: CERVICOBRACHIAL SYNDROME
     Dosage: 550 MG, PRN, ^1 THREE TIMES^

REACTIONS (2)
  - Fall [Unknown]
  - Dizziness [Recovered/Resolved]
